FAERS Safety Report 21480551 (Version 2)
Quarter: 2022Q4

REPORT INFORMATION
  Report Type: Report from Study
  Country: TR (occurrence: TR)
  Receive Date: 20221019
  Receipt Date: 20221103
  Transmission Date: 20230113
  Serious: No
  Sender: FDA-Public Use
  Company Number: TR-NOVARTISPH-NVSC2022TR234801

PATIENT
  Age: 9 Year
  Sex: Female
  Weight: 41.6 kg

DRUGS (1)
  1. OMNITROPE [Suspect]
     Active Substance: SOMATROPIN
     Indication: Product used for unknown indication
     Dosage: FREQUENCY 7 TIMES PER WEEK (45 IU)
     Route: 058
     Dates: start: 20221007

REACTIONS (1)
  - Nausea [Not Recovered/Not Resolved]

NARRATIVE: CASE EVENT DATE: 20221010
